FAERS Safety Report 4479245-0 (Version None)
Quarter: 2004Q4

REPORT INFORMATION
  Report Type: 
  Country: None (occurrence: None)
  Receive Date: 20041019
  Receipt Date: 20041019
  Transmission Date: 20050328
  Serious: Yes (Life-Threatening)
  Sender: FDA-Public Use
  Company Number: None

PATIENT
  Age: 63 Year
  Sex: Male
  Weight: 106 kg

DRUGS (7)
  1. ENALAPRILAT [Suspect]
     Indication: HYPERTENSION
     Dosage: 1.25MG  1 DOSE  INTRAVENOUS
     Route: 042
     Dates: start: 20040409, end: 20040409
  2. ASPIRIN [Concomitant]
  3. CLOPIDOGREL [Concomitant]
  4. METOPROLOL [Concomitant]
  5. WARFARIN SODIUM [Concomitant]
  6. FUROSEMIDE [Concomitant]
  7. INSULIN [Concomitant]

REACTIONS (1)
  - OROPHARYNGEAL SWELLING [None]
